FAERS Safety Report 4601378-6 (Version None)
Quarter: 2005Q1

REPORT INFORMATION
  Report Type: 
  Country: None (occurrence: None)
  Receive Date: 20050202
  Receipt Date: 20040514
  Transmission Date: 20050727
  Serious: Yes (Other)
  Sender: FDA-Public Use
  Company Number: 8006342

PATIENT
  Age: 20 Year
  Sex: Female
  Weight: 57.7 kg

DRUGS (5)
  1. KEPPRA [Suspect]
     Indication: CONVULSION
     Dosage: PO
     Route: 048
  2. KEPPRA [Suspect]
     Indication: CONVULSION
     Dosage: 750 MG 2/D PO
     Route: 048
  3. XENICAL [Suspect]
     Indication: ORAL CONTRACEPTION
     Dosage: PO
     Route: 048
     Dates: start: 20030730, end: 20030817
  4. LAMICTAL [Suspect]
     Indication: CONVULSION
     Dosage: PO
     Route: 048
     Dates: start: 19980101
  5. LAMICTAL [Suspect]
     Indication: CONVULSION
     Dosage: PO
     Route: 048

REACTIONS (3)
  - DRUG INTERACTION [None]
  - GRAND MAL CONVULSION [None]
  - WEIGHT INCREASED [None]
